FAERS Safety Report 14987091 (Version 1)
Quarter: 2018Q2

REPORT INFORMATION
  Report Type: Spontaneous
  Country: DE (occurrence: DE)
  Receive Date: 20180608
  Receipt Date: 20180608
  Transmission Date: 20180711
  Serious: Yes (Hospitalization)
  Sender: FDA-Public Use
  Company Number: DE-TEVA-2018-DE-902986

PATIENT
  Age: 87 Year
  Sex: Female

DRUGS (7)
  1. LOPERAMID [Concomitant]
     Active Substance: LOPERAMIDE
     Dosage: NK MG, BEDARF
     Route: 065
  2. SIMVASTATIN. [Concomitant]
     Active Substance: SIMVASTATIN
     Dosage: 40 MG, 0-0-1-0
     Route: 065
  3. CARMEN [Concomitant]
     Active Substance: LERCANIDIPINE
     Dosage: 10 MG, 1-0-1-0
     Route: 065
  4. VALSARTAN. [Concomitant]
     Active Substance: VALSARTAN
     Dosage: 160 MG, 1-0-0.5-0
     Route: 065
  5. VOLTAREN [Concomitant]
     Active Substance: DICLOFENAC SODIUM
     Dosage: NK MG, BEDARF, SALBE
     Route: 065
  6. IBUPROFEN. [Suspect]
     Active Substance: IBUPROFEN
     Dosage: 600 MG, 1-1-1-1
     Route: 065
  7. NOCTAMID [Concomitant]
     Active Substance: LORMETAZEPAM
     Dosage: 1 MG, 0-0-0-1
     Route: 065

REACTIONS (3)
  - Nausea [Unknown]
  - Drug prescribing error [Unknown]
  - Vomiting [Unknown]
